FAERS Safety Report 13384366 (Version 1)
Quarter: 2017Q1

REPORT INFORMATION
  Report Type: Spontaneous
  Country: US (occurrence: US)
  Receive Date: 20170329
  Receipt Date: 20170329
  Transmission Date: 20170429
  Serious: Yes (Other)
  Sender: FDA-Public Use
  Company Number: US-SHIRE-US201706819

PATIENT
  Age: 11 Year
  Sex: Male
  Weight: 30.39 kg

DRUGS (3)
  1. VYVANSE [Suspect]
     Active Substance: LISDEXAMFETAMINE DIMESYLATE
     Indication: ATTENTION DEFICIT/HYPERACTIVITY DISORDER
     Dosage: 50 MG, 1X/DAY:QD
     Route: 048
  2. GENOTROPIN [Suspect]
     Active Substance: SOMATROPIN
     Indication: GROWTH HORMONE DEFICIENCY
     Dosage: 1.8 MG, OTHER (SIX DAYS A WEEK)
     Route: 058
  3. ADDERALL [Suspect]
     Active Substance: AMPHETAMINE ASPARTATE\AMPHETAMINE SULFATE\DEXTROAMPHETAMINE SACCHARATE\DEXTROAMPHETAMINE SULFATE
     Dosage: 10 MG, 1X/DAY:QD
     Route: 048

REACTIONS (6)
  - Hypermetabolism [Unknown]
  - Cough [Recovered/Resolved]
  - Malaise [Unknown]
  - Growth retardation [Unknown]
  - Hypophagia [Unknown]
  - Weight gain poor [Unknown]

NARRATIVE: CASE EVENT DATE: 20170228
